FAERS Safety Report 14604038 (Version 2)
Quarter: 2018Q3

REPORT INFORMATION
  Report Type: Spontaneous
  Country: US (occurrence: US)
  Receive Date: 20180306
  Receipt Date: 20180809
  Transmission Date: 20181010
  Serious: Yes (Hospitalization, Other)
  Sender: FDA-Public Use
  Company Number: US-009507513-1802USA012860

PATIENT
  Sex: Female
  Weight: 65.76 kg

DRUGS (1)
  1. NUVARING [Suspect]
     Active Substance: ETHINYL ESTRADIOL\ETONOGESTREL
     Indication: CONTRACEPTION
     Dosage: 1 DF, UNK
     Route: 067
     Dates: start: 20150807, end: 201603

REACTIONS (8)
  - Swelling [Unknown]
  - Pulmonary embolism [Unknown]
  - Intervertebral disc protrusion [Unknown]
  - Menorrhagia [Unknown]
  - Spinal deformity [Unknown]
  - Neck pain [Unknown]
  - Pulmonary infarction [Unknown]
  - Breast mass [Unknown]

NARRATIVE: CASE EVENT DATE: 20151123
